FAERS Safety Report 9842696 (Version 2)
Quarter: 2014Q1

REPORT INFORMATION
  Report Type: Spontaneous
  Country: US (occurrence: US)
  Receive Date: 20140124
  Receipt Date: 20140124
  Transmission Date: 20141002
  Serious: No
  Sender: FDA-Public Use
  Company Number: US-009507513-2010SP048909

PATIENT
  Age: 66 Year
  Sex: Male
  Weight: 76.1 kg

DRUGS (10)
  1. INTRONA [Suspect]
     Indication: SKIN CANCER
     Dosage: 1.5 MILLION IU, TIW
     Dates: start: 20090713, end: 20100815
  2. INTRONA [Suspect]
     Indication: LYMPHOMA
     Dosage: 2.1 MILLION IU, UNKNOWN
  3. INTRONA [Suspect]
     Dosage: 2.4 MILLION IU, UNKNOWN
  4. INTRONA [Suspect]
     Dosage: 1.5 MILLION IU, UNKNOWN
     Dates: start: 20091019
  5. INTRONA [Suspect]
     Dosage: UNK UNK, UNKNOWN
     Dates: start: 201005
  6. INTRONA [Suspect]
     Dosage: TIW
     Dates: start: 200310, end: 200401
  7. VITAMINS (UNSPECIFIED) [Concomitant]
     Indication: PRODUCT USED FOR UNKNOWN INDICATION
     Dosage: 1 TABLET, QD
  8. ACYCLOVIR [Concomitant]
     Indication: PRODUCT USED FOR UNKNOWN INDICATION
     Dosage: 400 MG, BID
  9. MECHLORETHAMINE HYDROCHLORIDE [Concomitant]
     Indication: SKIN DISORDER
     Dosage: UNK
     Route: 061
     Dates: start: 200301, end: 200310
  10. ASTRAGALUS [Concomitant]
     Dosage: 250 MG, BID

REACTIONS (8)
  - Blood urine [Not Recovered/Not Resolved]
  - Chest discomfort [Recovering/Resolving]
  - Palpitations [Not Recovered/Not Resolved]
  - Headache [Not Recovered/Not Resolved]
  - Dyspnoea [Unknown]
  - Dizziness [Unknown]
  - Fatigue [Unknown]
  - Palpitations [Unknown]
